FAERS Safety Report 9238067 (Version 1)
Quarter: 2013Q2

REPORT INFORMATION
  Report Type: Spontaneous
  Country: ES (occurrence: ES)
  Receive Date: 20130418
  Receipt Date: 20130418
  Transmission Date: 20140414
  Serious: Yes (Hospitalization)
  Sender: FDA-Public Use
  Company Number: PHHY2013ES036041

PATIENT
  Age: 80 Year
  Sex: Female

DRUGS (6)
  1. EXELON PATCH [Suspect]
     Indication: DEMENTIA
     Dosage: 9.5 MG, DAILY
     Route: 062
     Dates: start: 201209, end: 20130110
  2. ENALAPRIL [Suspect]
     Indication: HYPERTENSION
     Dosage: 10 MG, DAILY
     Route: 048
  3. RISPERIDONE [Suspect]
     Indication: DEPRESSION
     Dosage: 1 MG, DAILY
     Route: 048
     Dates: start: 20121119, end: 20130110
  4. QUETIAPINE [Suspect]
     Indication: DEPRESSION
     Dosage: 100 MG, DAILY
     Route: 048
     Dates: start: 20121002
  5. SEGURIL [Suspect]
     Indication: CARDIAC FAILURE
     Dosage: 40 MG, UNK
     Route: 048
     Dates: start: 201206
  6. PRAVASTATIN [Concomitant]
     Indication: CARDIAC FAILURE
     Dosage: 40 MG, DAILY
     Route: 048
     Dates: start: 201206

REACTIONS (2)
  - Renal failure acute [Recovered/Resolved]
  - Somnolence [Recovered/Resolved]
